FAERS Safety Report 6768829-2 (Version None)
Quarter: 2010Q2

REPORT INFORMATION
  Report Type: 
  Country: None (occurrence: None)
  Receive Date: 20100611
  Receipt Date: 20100527
  Transmission Date: 20101027
  Serious: Yes (Hospitalization)
  Sender: FDA-Public Use
  Company Number: 2010AL003133

PATIENT
  Age: 25 Year
  Sex: Male

DRUGS (4)
  1. CARBAMAZEPINE [Suspect]
     Indication: PSYCHOTIC DISORDER
     Dosage: 800 MG;QD
  2. CLONAZEPAM [Suspect]
     Indication: PSYCHOTIC DISORDER
     Dosage: 6 MG;QD
  3. OLANZAPINE [Concomitant]
  4. CLORAZEPATE DIPOTASSIUM [Concomitant]

REACTIONS (1)
  - RHABDOMYOLYSIS [None]
